FAERS Safety Report 5430225-8 (Version None)
Quarter: 2007Q3

REPORT INFORMATION
  Report Type: 
  Country: None (occurrence: None)
  Receive Date: 20070731
  Receipt Date: 20070511
  Transmission Date: 20080115
  Serious: No
  Sender: FDA-Public Use
  Company Number: US200705003514

PATIENT
  Age: 64 Year
  Sex: Male

DRUGS (2)
  1. BYETTA [Suspect]
     Indication: TYPE 2 DIABETES MELLITUS
     Dosage: SUBCUTANEOUS
     Route: 058
     Dates: start: 20070301
  2. EXENATIDE UNK STRENGTH PEN, DISPOSABLE DEVICE (EXENATIDE PEN (UNKNOWN [Concomitant]

REACTIONS (1)
  - INSOMNIA [None]
